FAERS Safety Report 15628998 (Version 1)
Quarter: 2018Q4

REPORT INFORMATION
  Report Type: Report from Study
  Country: DE (occurrence: DE)
  Receive Date: 20181116
  Receipt Date: 20181116
  Transmission Date: 20190205
  Serious: Yes (Hospitalization)
  Sender: FDA-Public Use
  Company Number: DE-GILEAD-2018-0374054

PATIENT
  Age: 73 Year
  Sex: Female

DRUGS (9)
  1. PLASTULEN DUO [Concomitant]
  2. FERROSANOL [Concomitant]
     Active Substance: FERROUS GLUCONATE
  3. PANTOPRAZOL [PANTOPRAZOLE] [Concomitant]
     Dosage: 40 MG, UNK
  4. RAMIPRIL. [Concomitant]
     Active Substance: RAMIPRIL
     Dosage: 2.5 MG, UNK
  5. VITAMIN B12 [Concomitant]
     Active Substance: CYANOCOBALAMIN
  6. SITAGLIPTIN [Concomitant]
     Active Substance: SITAGLIPTIN
  7. SOFOSBUVIR W/VELPATASVIR [Suspect]
     Active Substance: SOFOSBUVIR\VELPATASVIR
     Indication: CHRONIC HEPATITIS C
     Dosage: 1 DF, QD
     Route: 048
     Dates: start: 20180516, end: 20180823
  8. DABIGATRAN [Concomitant]
     Active Substance: DABIGATRAN
     Dosage: 150 MG, UNK
  9. BISOPROLOL [Concomitant]
     Active Substance: BISOPROLOL
     Dosage: 5 MG, UNK

REACTIONS (3)
  - Gastrointestinal infection [Unknown]
  - Gastric polyps [Unknown]
  - Headache [Unknown]

NARRATIVE: CASE EVENT DATE: 20180726
